FAERS Safety Report 21871309 (Version 1)
Quarter: 2023Q1

REPORT INFORMATION
  Report Type: Spontaneous
  Country: US (occurrence: None)
  Receive Date: 20230113
  Receipt Date: 20230113
  Transmission Date: 20230417
  Serious: Yes (Hospitalization)
  Sender: FDA-Public Use
  Company Number: None

PATIENT
  Age: 65 Year
  Sex: Male
  Weight: 83.4 kg

DRUGS (2)
  1. INVESTIGATIONAL PRODUCT [Suspect]
     Active Substance: INVESTIGATIONAL PRODUCT
     Indication: Non-small cell lung cancer
     Dosage: FREQUENCY : TWICE A DAY;?
     Route: 048
     Dates: start: 20221229
  2. NIVOLUMAB [Suspect]
     Active Substance: NIVOLUMAB
     Indication: Non-small cell lung cancer
     Dosage: OTHER FREQUENCY : CYCLE C1, 29;?
     Route: 042
     Dates: start: 20221229

REACTIONS (13)
  - Tachycardia [None]
  - Dyspnoea [None]
  - Fatigue [None]
  - Diarrhoea [None]
  - White blood cell count increased [None]
  - Blood potassium increased [None]
  - Blood creatinine increased [None]
  - Glomerular filtration rate decreased [None]
  - Aspartate aminotransferase increased [None]
  - Coronavirus test positive [None]
  - Lung opacity [None]
  - Acute kidney injury [None]
  - Hyponatraemia [None]

NARRATIVE: CASE EVENT DATE: 20230113
